FAERS Safety Report 8857722 (Version 1)
Quarter: 2012Q4

REPORT INFORMATION
  Report Type: 
  Country: NZ (occurrence: NZ)
  Receive Date: 20121024
  Receipt Date: 20121024
  Transmission Date: 20130627
  Serious: Yes (Hospitalization)
  Sender: FDA-Public Use
  Company Number: NZ-B.I. PHARMACEUTICALS,INC./RIDGEFIELD-2012-AU-01784AU

PATIENT
  Age: 83 Year
  Sex: Female

DRUGS (1)
  1. PRADAXA [Suspect]
     Dosage: 220 mg
     Dates: start: 201203, end: 201204

REACTIONS (3)
  - Vascular rupture [Unknown]
  - Skin discolouration [Unknown]
  - Eye haemorrhage [Unknown]
